FAERS Safety Report 24676514 (Version 4)
Quarter: 2025Q2

REPORT INFORMATION
  Report Type: Spontaneous
  Country: US (occurrence: US)
  Receive Date: 20241128
  Receipt Date: 20250603
  Transmission Date: 20250717
  Serious: No
  Sender: SANOFI AVENTIS
  Company Number: US-SA-2024SA348201

PATIENT
  Sex: Male

DRUGS (1)
  1. DUPIXENT [Suspect]
     Active Substance: DUPILUMAB
     Indication: Neurodermatitis
     Dosage: 300 MG, QOW
     Route: 058
     Dates: start: 202312

REACTIONS (5)
  - Rash erythematous [Unknown]
  - Swelling [Unknown]
  - Urticaria [Unknown]
  - Pruritus [Unknown]
  - Drug ineffective [Unknown]
